FAERS Safety Report 21843056 (Version 1)
Quarter: 2023Q1

REPORT INFORMATION
  Report Type: Spontaneous
  Country: GB (occurrence: GB)
  Receive Date: 20230110
  Receipt Date: 20230110
  Transmission Date: 20230418
  Serious: Yes (Hospitalization, Other)
  Sender: FDA-Public Use
  Company Number: None

PATIENT
  Age: 1 Year
  Sex: Male
  Weight: 11 kg

DRUGS (14)
  1. HYDROCORTISONE SODIUM SUCCINATE [Suspect]
     Active Substance: HYDROCORTISONE SODIUM SUCCINATE
     Dosage: UNK
     Route: 042
     Dates: start: 20230104, end: 20230104
  2. AMOXICILLIN [Concomitant]
     Active Substance: AMOXICILLIN
     Dosage: FOR SEVEN...
     Dates: start: 20221223, end: 20221230
  3. AZITHROMYCIN [Concomitant]
     Active Substance: AZITHROMYCIN
     Dosage: 2.5 ML, 3X/WEEK
     Dates: start: 20220530
  4. FUSIDIC ACID [Concomitant]
     Active Substance: FUSIDIC ACID
     Dosage: APPLY TO THE AFFECTED AREA THREE TO FOUR TIMES ...
     Dates: start: 20221012, end: 20221019
  5. LANSOPRAZOLE [Concomitant]
     Active Substance: LANSOPRAZOLE
     Dosage: 2.5 ML, 1X/DAY
     Dates: start: 20220920, end: 20221108
  6. MICONAZOLE [Concomitant]
     Active Substance: MICONAZOLE
     Dosage: APPLY
     Dates: start: 20221125, end: 20221202
  7. NEOCATE JUNIOR [Concomitant]
     Dosage: USE AS DIRECTED
     Dates: start: 20221004
  8. OMEPRAZOLE [Concomitant]
     Active Substance: OMEPRAZOLE
     Dosage: 5 ML, 1X/DAY
     Dates: start: 20221103
  9. ACETAMINOPHEN [Concomitant]
     Active Substance: ACETAMINOPHEN
     Dosage: 2.5 ML, 4X/DAY
     Dates: start: 20221021, end: 20221026
  10. SODIUM FEREDETATE [Concomitant]
     Active Substance: SODIUM FEREDETATE
     Dosage: 1 ML, 1X/DAY
     Dates: start: 20220105
  11. STERI-NEB SALINE [Concomitant]
     Dosage: USE AS DIRECTED
     Dates: start: 20221223, end: 20221228
  12. ACETAMINOPHEN\BENZALKONIUM\DICHLORALPHENAZONE\DIMETHICONE\HYDROCORTISO [Concomitant]
     Active Substance: ACETAMINOPHEN\BENZALKONIUM\DICHLORALPHENAZONE\DIMETHICONE\HYDROCORTISONE\ISOMETHEPTENE\NYSTATIN
     Dosage: 1 DF, 3X/DAY, APPLY
     Dates: start: 20221007, end: 20221014
  13. EASYHALER [Concomitant]
     Dosage: INHALE 1 DOSE AS NEEDED VIA SPACER
     Dates: start: 20220413
  14. HONEY [Concomitant]
     Active Substance: HONEY
     Dosage: USE AS DIRECTED
     Dates: start: 20221125, end: 20221202

REACTIONS (1)
  - Bradycardia [Recovered/Resolved]

NARRATIVE: CASE EVENT DATE: 20230104
